FAERS Safety Report 9236013 (Version 5)
Quarter: 2020Q3

REPORT INFORMATION
  Report Type: Spontaneous
  Country: IT (occurrence: IT)
  Receive Date: 20130417
  Receipt Date: 20200928
  Transmission Date: 20201103
  Serious: Yes (Disabling)
  Sender: FDA-Public Use
  Company Number: IT-MERCK-1304ITA004492

PATIENT
  Age: 33 Year
  Sex: Male
  Weight: 80 kg

DRUGS (2)
  1. PROPECIA [Suspect]
     Active Substance: FINASTERIDE
     Indication: ANDROGENETIC ALOPECIA
     Dosage: 1 MILLIGRAM, QD
     Route: 048
     Dates: start: 20010615, end: 2006
  2. PROPECIA [Suspect]
     Active Substance: FINASTERIDE
     Indication: ALOPECIA

REACTIONS (7)
  - Insomnia [Unknown]
  - Prostatitis [Not Recovered/Not Resolved]
  - Dyskinesia [Unknown]
  - Dysarthria [Unknown]
  - Asthenia [Not Recovered/Not Resolved]
  - Post 5-alpha-reductase inhibitor syndrome [Not Recovered/Not Resolved]
  - Visual impairment [Not Recovered/Not Resolved]

NARRATIVE: CASE EVENT DATE: 20080101
